FAERS Safety Report 9617462 (Version 5)
Quarter: 2014Q1

REPORT INFORMATION
  Report Type: Spontaneous
  Country: FR (occurrence: FR)
  Receive Date: 20131011
  Receipt Date: 20140211
  Transmission Date: 20141002
  Serious: Yes (Other)
  Sender: FDA-Public Use
  Company Number: FR-ROCHE-1286900

PATIENT
  Sex: Female

DRUGS (3)
  1. LUCENTIS [Suspect]
     Indication: AGE-RELATED MACULAR DEGENERATION
     Dosage: 10MG/MI
     Route: 050
     Dates: start: 20130607
  2. LUCENTIS [Suspect]
     Route: 050
     Dates: start: 20130708
  3. LUCENTIS [Suspect]
     Route: 050
     Dates: start: 20130823, end: 20130823

REACTIONS (14)
  - Myalgia [Not Recovered/Not Resolved]
  - Inflammation [Not Recovered/Not Resolved]
  - Skin burning sensation [Unknown]
  - Autoimmune disorder [Unknown]
  - Pain in extremity [Not Recovered/Not Resolved]
  - Back pain [Not Recovered/Not Resolved]
  - Groin pain [Unknown]
  - Asthenia [Recovered/Resolved]
  - Tremor [Recovered/Resolved]
  - Night sweats [Recovered/Resolved]
  - Feeling cold [Unknown]
  - Dysstasia [Unknown]
  - Arthralgia [Unknown]
  - Thrombocytosis [Recovering/Resolving]
